FAERS Safety Report 18093052 (Version 2)
Quarter: 2020Q3

REPORT INFORMATION
  Report Type: Report from Study
  Country: CA (occurrence: CA)
  Receive Date: 20200730
  Receipt Date: 20200818
  Transmission Date: 20201103
  Serious: Yes (Hospitalization)
  Sender: FDA-Public Use
  Company Number: NVSC2020CA197618

PATIENT
  Sex: Male

DRUGS (3)
  1. REVOLADE [Suspect]
     Active Substance: ELTROMBOPAG
     Indication: IMMUNE THROMBOCYTOPENIA
     Dosage: UNK (STRENGTH 50 MG)
     Route: 048
  2. REVOLADE [Suspect]
     Active Substance: ELTROMBOPAG
     Dosage: 25 MG
     Route: 048
     Dates: start: 20200709
  3. PREDNISONE. [Suspect]
     Active Substance: PREDNISONE
     Indication: PRODUCT USED FOR UNKNOWN INDICATION
     Dosage: UNK
     Route: 065

REACTIONS (11)
  - Platelet count increased [Unknown]
  - Mobility decreased [Unknown]
  - Product dose omission issue [Unknown]
  - Product supply issue [Unknown]
  - Nausea [Unknown]
  - Immune system disorder [Unknown]
  - Asthenia [Unknown]
  - Drug tolerance [Unknown]
  - Fatigue [Unknown]
  - Chest discomfort [Unknown]
  - Musculoskeletal chest pain [Unknown]
